FAERS Safety Report 11288621 (Version 1)
Quarter: 2015Q3

REPORT INFORMATION
  Report Type: Spontaneous
  Country: FR (occurrence: FR)
  Receive Date: 20150721
  Receipt Date: 20150721
  Transmission Date: 20151125
  Serious: Yes (Hospitalization, Other)
  Sender: FDA-Public Use
  Company Number: FR-PFIZER INC-2015238955

PATIENT
  Age: 85 Year
  Sex: Female

DRUGS (12)
  1. EFFEXOR LP [Suspect]
     Active Substance: VENLAFAXINE HYDROCHLORIDE
     Indication: DEPRESSION
     Dosage: 75 MG, 1X/DAY
     Route: 048
     Dates: end: 20150204
  2. INEXIUM 20 [Concomitant]
     Dosage: UNK
  3. AMLOR 5 [Concomitant]
     Dosage: UNK
  4. NOVORAPID [Concomitant]
     Active Substance: INSULIN ASPART
     Dosage: 3 IU IN THE MORNING, 6 IU AT NOON, 4 IU IN THE EVENING
  5. LASILIX [Interacting]
     Active Substance: FUROSEMIDE
     Indication: HYPERTENSION
     Dosage: 40 MG, 3X/DAY
     Route: 048
     Dates: end: 20150204
  6. TAHOR 10 [Concomitant]
     Dosage: UNK
  7. XARELTO 15 [Concomitant]
     Dosage: UNK
  8. CARDENSIEL [Concomitant]
     Active Substance: BISOPROLOL FUMARATE
     Dosage: 5 (UNIT NOT PROVIDED)
  9. DIFFU K [Concomitant]
     Active Substance: POTASSIUM CHLORIDE
     Dosage: UNK
  10. LEVOTHYROX [Concomitant]
     Active Substance: LEVOTHYROXINE
     Dosage: UNK
  11. COAPROVEL [Interacting]
     Active Substance: HYDROCHLOROTHIAZIDE\IRBESARTAN
     Indication: HYPERTENSION
     Dosage: 1 DF OF 320 MG/25 MG, 1X/DAY
     Route: 048
     Dates: end: 20150204
  12. LEVEMIR [Concomitant]
     Active Substance: INSULIN DETEMIR
     Dosage: 25 IU, 1X/DAY IN THE EVENING

REACTIONS (10)
  - Enterococcal infection [Unknown]
  - Hypochloraemia [Unknown]
  - Drug interaction [Recovered/Resolved]
  - Hypokalaemia [Recovered/Resolved]
  - Vomiting [Unknown]
  - Hyponatraemia [Recovered/Resolved]
  - Abdominal pain upper [Unknown]
  - Dehydration [Unknown]
  - Gastrooesophageal reflux disease [Unknown]
  - Constipation [Unknown]

NARRATIVE: CASE EVENT DATE: 2015
